FAERS Safety Report 8547011-2 (Version None)
Quarter: 2012Q3

REPORT INFORMATION
  Report Type: 
  Country: None (occurrence: None)
  Receive Date: 20120727
  Receipt Date: 20120306
  Transmission Date: 20120928
  Serious: No
  Sender: FDA-Public Use
  Company Number: US-ASTRAZENECA-2012SE16226

PATIENT
  Age: 40 Year
  Sex: Male

DRUGS (12)
  1. HALOPERIDOL [Concomitant]
     Indication: PSYCHOTIC DISORDER
     Dosage: TAKE 3 TABLETS EVERY EVENING
  2. TRAZODONE HYDROCHLORIDE [Concomitant]
     Dosage: TAKE 2 TABLETS EVERY EVENING
  3. PAROXETINE HCL [Concomitant]
     Dosage: TAKE 1 TABLET EVERY EVENING
  4. OMEPRAZOLE [Concomitant]
     Indication: GASTRIC ULCER
     Dosage: TAKE 1 CAPSULE TWICE DAILY
  5. NAPROXEN [Concomitant]
     Indication: OSTEOARTHRITIS
     Dosage: TAKE 1 TABLET TWICE DAILY
  6. SENOKOT [Concomitant]
     Indication: CONSTIPATION
     Dosage: TAKE 2 TABLETS TWICE DAILY
  7. SEROQUEL [Suspect]
     Indication: BIPOLAR I DISORDER
     Dosage: 1 TABLET EVERY EVENING
     Route: 048
  8. LORATADINE [Concomitant]
     Indication: RHINITIS ALLERGIC
     Dosage: TAKE 1 TABLET EVERY EVENING
  9. HYDROXYZINE PAM [Concomitant]
     Indication: RASH
     Dosage: TAKE 1 CAPSULE EVERY EVENING
  10. NEURONTIN [Concomitant]
     Indication: AKATHISIA
     Dosage: TAKE 1 TABLET EVERY EVENING
  11. SIMVASTATIN [Concomitant]
     Indication: TYPE V HYPERLIPIDAEMIA
     Dosage: TAKE 1 TABLET EVERY EVENING
  12. LITHOBID [Concomitant]
     Indication: BIPOLAR DISORDER
     Dosage: TAKE 1 TABLET TWICE DAILY (1 PM AND 8 PM)

REACTIONS (4)
  - DRUG INEFFECTIVE [None]
  - MIGRAINE [None]
  - GASTROOESOPHAGEAL REFLUX DISEASE [None]
  - CALCULUS URINARY [None]
